FAERS Safety Report 17801915 (Version 1)
Quarter: 2020Q2

REPORT INFORMATION
  Report Type: Spontaneous
  Country: US (occurrence: US)
  Receive Date: 20200518
  Receipt Date: 20200518
  Transmission Date: 20200714
  Serious: Yes (Death)
  Sender: FDA-Public Use
  Company Number: None

PATIENT
  Sex: Female

DRUGS (16)
  1. METFORMIN [Concomitant]
     Active Substance: METFORMIN HYDROCHLORIDE
  2. FUROSEMIDE. [Concomitant]
     Active Substance: FUROSEMIDE
  3. VITAMIN D3 [Concomitant]
     Active Substance: CHOLECALCIFEROL
  4. FISH OIL [Concomitant]
     Active Substance: FISH OIL
  5. POT CL MICRO [Concomitant]
  6. VITAMIN B12 [Concomitant]
     Active Substance: CYANOCOBALAMIN
  7. REPATHA [Suspect]
     Active Substance: EVOLOCUMAB
     Indication: HYPERLIPIDAEMIA
     Dosage: ?          OTHER FREQUENCY:EVERY 2 WEEKS;?
     Route: 058
     Dates: start: 20200122
  8. FELODIPINE. [Concomitant]
     Active Substance: FELODIPINE
  9. MULTIVITAMIN [Concomitant]
     Active Substance: VITAMINS
  10. TRAMADOL. [Concomitant]
     Active Substance: TRAMADOL
  11. VITAMIN C [Concomitant]
     Active Substance: ASCORBIC ACID
  12. CALCIUM [Concomitant]
     Active Substance: CALCIUM
  13. ASPIRIN. [Concomitant]
     Active Substance: ASPIRIN
  14. LIVALO [Concomitant]
     Active Substance: PITAVASTATIN CALCIUM
  15. METOPROLOL. [Concomitant]
     Active Substance: METOPROLOL
  16. Q SORB [Concomitant]

REACTIONS (1)
  - Death [None]
